FAERS Safety Report 9983545 (Version 2)
Quarter: 2014Q2

REPORT INFORMATION
  Report Type: Spontaneous
  Country: US (occurrence: US)
  Receive Date: 20140307
  Receipt Date: 20140416
  Transmission Date: 20141212
  Serious: No
  Sender: FDA-Public Use
  Company Number: US-B.I. PHARMACEUTICALS,INC./RIDGEFIELD-2014-BI-08375BP

PATIENT
  Age: 71 Year
  Sex: Male

DRUGS (1)
  1. COMBIVENT [Suspect]
     Indication: PRODUCT USED FOR UNKNOWN INDICATION
     Dosage: DOSE PER APPLICATION: 20MCG/100MCG; DAILY DOSE: 160MCG/800MCG
     Route: 055
     Dates: start: 201311

REACTIONS (2)
  - Drug prescribing error [Not Recovered/Not Resolved]
  - Product quality issue [Unknown]
